FAERS Safety Report 13781938 (Version 1)
Quarter: 2017Q3

REPORT INFORMATION
  Report Type: Spontaneous
  Country: SE (occurrence: SE)
  Receive Date: 20170724
  Receipt Date: 20170724
  Transmission Date: 20171127
  Serious: Yes (Other)
  Sender: FDA-Public Use
  Company Number: SE-PFIZER INC-2017312594

PATIENT
  Age: 76 Year
  Sex: Male

DRUGS (8)
  1. BRICANYL [Concomitant]
     Active Substance: TERBUTALINE SULFATE
     Dosage: UNK, AS NEEDED
     Dates: start: 20150912
  2. CHAMPIX [Suspect]
     Active Substance: VARENICLINE TARTRATE
     Indication: SMOKING CESSATION THERAPY
     Dosage: BOTH 0.5MG+1MG AND 1MG AT THE SAME TIME
     Dates: start: 20170420, end: 20170505
  3. SPIOLTO RESPIMAT [Concomitant]
     Active Substance: OLODATEROL HYDROCHLORIDE\TIOTROPIUM BROMIDE MONOHYDRATE
     Dosage: 2,5 MICROGRAM/2,5 MICROGRAM
     Dates: start: 20161201
  4. NICOTINELL [Concomitant]
     Active Substance: NICOTINE
     Dosage: UNK
     Route: 062
     Dates: start: 20161024
  5. MOVICOL [Concomitant]
     Active Substance: POLYETHYLENE GLYCOL 3350\POTASSIUM CHLORIDE\SODIUM BICARBONATE\SODIUM CHLORIDE
     Dosage: UNK, AS NEEDED
     Route: 048
     Dates: start: 20150923
  6. ALVEDON [Concomitant]
     Active Substance: ACETAMINOPHEN
     Dosage: 1-2 TABLETS, AS NEEDED
     Dates: start: 20150916
  7. ACETYLCYSTEIN MEDA [Concomitant]
     Dosage: UNK
     Dates: start: 20160318
  8. CILAXORAL [Concomitant]
     Active Substance: SODIUM PICOSULFATE
     Dosage: UNK, AS NEEDED
     Route: 048
     Dates: start: 20150428

REACTIONS (1)
  - Haematuria [Recovered/Resolved]

NARRATIVE: CASE EVENT DATE: 20170421
